FAERS Safety Report 10411477 (Version 1)
Quarter: 2014Q3

REPORT INFORMATION
  Report Type: Spontaneous
  Country: US (occurrence: US)
  Receive Date: 20140827
  Receipt Date: 20140827
  Transmission Date: 20150326
  Serious: Yes (Hospitalization)
  Sender: FDA-Public Use
  Company Number: US-BIOGENIDEC-2014BI083260

PATIENT
  Sex: Female

DRUGS (1)
  1. TYSABRI [Suspect]
     Active Substance: NATALIZUMAB
     Indication: MULTIPLE SCLEROSIS
     Route: 042
     Dates: start: 20070521, end: 20110318

REACTIONS (4)
  - Anaemia [Not Recovered/Not Resolved]
  - Thyroid cancer [Recovered/Resolved]
  - Epilepsy [Not Recovered/Not Resolved]
  - Dysarthria [Not Recovered/Not Resolved]
